FAERS Safety Report 25754137 (Version 2)
Quarter: 2025Q3

REPORT INFORMATION
  Report Type: Spontaneous
  Country: EU (occurrence: EU)
  Receive Date: 20250903
  Receipt Date: 20250922
  Transmission Date: 20251020
  Serious: Yes (Life-Threatening, Hospitalization)
  Sender: TEVA
  Company Number: EU-TEVA-VS-3367089

PATIENT
  Age: 35 Year
  Sex: Female

DRUGS (1)
  1. CISPLATIN [Suspect]
     Active Substance: CISPLATIN
     Indication: Squamous cell carcinoma of the cervix
     Route: 065

REACTIONS (4)
  - Pulmonary embolism [Recovered/Resolved]
  - Cardiac arrest [Recovered/Resolved]
  - Intra-abdominal haemorrhage [Recovered/Resolved]
  - Hypovolaemic shock [Recovered/Resolved]
